FAERS Safety Report 6444772-3 (Version None)
Quarter: 2009Q4

REPORT INFORMATION
  Report Type: 
  Country: None (occurrence: None)
  Receive Date: 20091118
  Receipt Date: 20091110
  Transmission Date: 20100525
  Serious: Yes (Other)
  Sender: FDA-Public Use
  Company Number: B0601006A

PATIENT
  Sex: Male
  Weight: 52 kg

DRUGS (2)
  1. RELENZA [Suspect]
     Indication: INFLUENZA
     Dosage: 10MG TWICE PER DAY
     Route: 055
     Dates: start: 20091012, end: 20091016
  2. CALONAL [Suspect]
     Dosage: 200MG PER DAY
     Route: 048
     Dates: start: 20091012, end: 20091013

REACTIONS (1)
  - HALLUCINATION [None]
